FAERS Safety Report 7732880-6 (Version None)
Quarter: 2011Q3

REPORT INFORMATION
  Report Type: 
  Country: None (occurrence: None)
  Receive Date: 20110907
  Receipt Date: 20110823
  Transmission Date: 20111222
  Serious: Yes (Other)
  Sender: FDA-Public Use
  Company Number: US-JNJFOC-20110813107

PATIENT
  Age: 58 Year
  Sex: Male
  Weight: 81.65 kg

DRUGS (2)
  1. BENADRYL [Suspect]
     Route: 048
  2. BENADRYL [Suspect]
     Indication: RHINORRHOEA
     Route: 048
     Dates: start: 20110701, end: 20110702

REACTIONS (4)
  - DIZZINESS [None]
  - PRODUCT QUALITY ISSUE [None]
  - LIGAMENT SPRAIN [None]
  - HEADACHE [None]
